FAERS Safety Report 9162456 (Version 2)
Quarter: 2013Q1

REPORT INFORMATION
  Report Type: Spontaneous
  Country: BR (occurrence: BR)
  Receive Date: 20130314
  Receipt Date: 20130318
  Transmission Date: 20140127
  Serious: Yes (Hospitalization)
  Sender: FDA-Public Use
  Company Number: BR-PFIZER INC-2013083042

PATIENT
  Age: 60 Year
  Sex: Male

DRUGS (8)
  1. CELEBRA [Suspect]
     Indication: PAIN
     Dosage: 1 CAPSULE (200 MG), 2X/DAY
     Route: 048
     Dates: start: 20130115
  2. LYRICA [Suspect]
     Indication: PAIN
     Dosage: 1 CAPSULE (75 MG), 2X/DAY
     Route: 048
     Dates: start: 20130115
  3. TRAMAL [Suspect]
     Indication: PAIN
     Dosage: STRENGTH 50 MG
     Route: 048
     Dates: start: 20130115
  4. AMLODIPINE [Concomitant]
     Indication: BLOOD PRESSURE
     Dosage: UNK
  5. DIAZEPAM [Concomitant]
     Indication: SLEEP DISORDER THERAPY
     Dosage: UNK
  6. LOSARTAN [Concomitant]
     Indication: BLOOD PRESSURE
     Dosage: UNK
  7. METFORMIN [Concomitant]
     Indication: DIABETES MELLITUS
     Dosage: STRENGTH 850
  8. OMEPRAZOL [Concomitant]
     Indication: ABDOMINAL PAIN UPPER
     Dosage: UNK
     Dates: start: 20130115

REACTIONS (1)
  - Post procedural infection [Unknown]
